FAERS Safety Report 18368615 (Version 6)
Quarter: 2020Q4

REPORT INFORMATION
  Report Type: Report from Study
  Country: None (occurrence: FR)
  Receive Date: 20201010
  Receipt Date: 20201105
  Transmission Date: 20210114
  Serious: Yes (Death, Hospitalization, Other)
  Sender: FDA-Public Use
  Company Number: FR-ABBVIE-20K-056-3597223-00

PATIENT
  Age: 76 Year
  Sex: Male

DRUGS (2)
  1. DUODOPA [Suspect]
     Active Substance: CARBIDOPA\LEVODOPA
     Indication: PARKINSON^S DISEASE
     Dosage: 20 MG/ML 5 MG/ML
     Route: 050
     Dates: start: 201811
  2. DUODOPA [Suspect]
     Active Substance: CARBIDOPA\LEVODOPA

REACTIONS (6)
  - Volvulus [Not Recovered/Not Resolved]
  - General physical health deterioration [Unknown]
  - Device leakage [Not Recovered/Not Resolved]
  - COVID-19 [Fatal]
  - Fall [Unknown]
  - General physical condition abnormal [Fatal]

NARRATIVE: CASE EVENT DATE: 2020
